FAERS Safety Report 9819168 (Version 1)
Quarter: 2014Q1

REPORT INFORMATION
  Report Type: Spontaneous
  Country: US (occurrence: US)
  Receive Date: 20140115
  Receipt Date: 20140115
  Transmission Date: 20141002
  Serious: Yes (Other)
  Sender: FDA-Public Use
  Company Number: US-PFIZER INC-2014010240

PATIENT
  Age: 55 Year
  Sex: Female
  Weight: 73.47 kg

DRUGS (11)
  1. NEURONTIN [Suspect]
     Indication: FIBROMYALGIA
     Dosage: UNK, 2X/DAY
     Route: 048
     Dates: start: 2009, end: 2009
  2. ZOFRAN [Concomitant]
     Dosage: 4 MG, UNK
  3. CLOPIDOGREL [Concomitant]
     Dosage: 75 MG, 1X/DAY
  4. AMLODIPINE [Concomitant]
     Dosage: 10 MG, 1X/DAY
  5. LISINOPRIL [Concomitant]
     Dosage: 5 MG, 1X/DAY
  6. ISOSORBIDE ER [Concomitant]
     Dosage: 30 MG, 1X/DAY
  7. METOPROLOL [Concomitant]
     Dosage: 25 MG, 1X/DAY
  8. TEMAZEPAM [Concomitant]
     Dosage: 30 MG, 1X/DAY
  9. MELATONIN [Concomitant]
     Dosage: 10 MG, UNK
  10. LYRICA [Concomitant]
     Dosage: UNK
  11. LEVOTHYROXINE [Concomitant]
     Indication: HYPOTHYROIDISM
     Dosage: UNK

REACTIONS (10)
  - Off label use [Unknown]
  - Blood triglycerides abnormal [Unknown]
  - Blood cholesterol abnormal [Unknown]
  - Thyroid function test abnormal [Unknown]
  - Full blood count decreased [Unknown]
  - Blood urea decreased [Unknown]
  - Renal disorder [Unknown]
  - Protein urine present [Unknown]
  - Pain in extremity [Unknown]
  - Drug ineffective for unapproved indication [Unknown]
